FAERS Safety Report 4717859-0 (Version None)
Quarter: 2005Q3

REPORT INFORMATION
  Report Type: 
  Country: None (occurrence: None)
  Receive Date: 20050720
  Receipt Date: 20050708
  Transmission Date: 20060218
  Serious: Yes (Hospitalization)
  Sender: FDA-Public Use
  Company Number: US-JNJFOC-20050300124

PATIENT
  Sex: Male

DRUGS (14)
  1. REMICADE [Suspect]
     Route: 042
  2. REMICADE [Suspect]
     Route: 042
  3. REMICADE [Suspect]
     Route: 042
  4. REMICADE [Suspect]
     Route: 042
  5. REMICADE [Suspect]
     Route: 042
  6. REMICADE [Suspect]
     Route: 042
  7. REMICADE [Suspect]
     Indication: RHEUMATOID ARTHRITIS
     Route: 042
  8. AMITRIPTYLINE HCL [Concomitant]
  9. PREVACID [Concomitant]
  10. TUMS [Concomitant]
  11. METHADONE HCL [Concomitant]
  12. XANAX [Concomitant]
  13. PREDNISONE [Concomitant]
  14. PROZAC [Concomitant]

REACTIONS (3)
  - ADRENOCORTICAL INSUFFICIENCY CHRONIC [None]
  - DEEP VEIN THROMBOSIS [None]
  - PULMONARY EMBOLISM [None]
